FAERS Safety Report 15220628 (Version 1)
Quarter: 2018Q3

REPORT INFORMATION
  Report Type: Spontaneous
  Country: US (occurrence: US)
  Receive Date: 20180731
  Receipt Date: 20180731
  Transmission Date: 20181010
  Serious: Yes (Death)
  Sender: FDA-Public Use
  Company Number: US-ROCHE-2161967

PATIENT
  Age: 67 Year
  Sex: Male
  Weight: 90.8 kg

DRUGS (6)
  1. ZELBORAF [Suspect]
     Active Substance: VEMURAFENIB
     Indication: MALIGNANT MELANOMA
     Dosage: 4 TABS TWICE IN A DAY
     Route: 048
     Dates: start: 20171222
  2. ELIQUIS [Concomitant]
     Active Substance: APIXABAN
     Dosage: ONGOING: NO
     Route: 048
     Dates: start: 20180412, end: 20180412
  3. WARFARIN SODIUM. [Concomitant]
     Active Substance: WARFARIN SODIUM
     Dosage: ONGOING: NO
     Route: 048
     Dates: start: 20171221, end: 20180412
  4. OXYCODONE [Concomitant]
     Active Substance: OXYCODONE
     Dosage: ONGOING: UNKNOWN
     Route: 048
     Dates: start: 20171221
  5. ONDANSETRON HCL [Concomitant]
     Active Substance: ONDANSETRON HYDROCHLORIDE
     Dosage: ONGOING: UNKNOWN
     Route: 048
     Dates: start: 20180216
  6. FENTANYL. [Concomitant]
     Active Substance: FENTANYL
     Dosage: ONGOING: UNKNOWN
     Route: 062
     Dates: start: 20171221

REACTIONS (1)
  - Death [Fatal]

NARRATIVE: CASE EVENT DATE: 20180618
